FAERS Safety Report 8080480-3 (Version None)
Quarter: 2012Q1

REPORT INFORMATION
  Report Type: 
  Country: None (occurrence: None)
  Receive Date: 20120130
  Receipt Date: 20120123
  Transmission Date: 20120608
  Serious: Yes (Hospitalization)
  Sender: FDA-Public Use
  Company Number: FR-TEVA-319666ISR

PATIENT
  Age: 25 Year
  Sex: Female

DRUGS (5)
  1. CORDARONE [Concomitant]
     Route: 048
     Dates: start: 20100101
  2. PROCORALAN [Concomitant]
     Route: 048
     Dates: start: 20110801
  3. VESANOID [Suspect]
     Route: 048
     Dates: start: 20051001, end: 20070301
  4. TRISENOX [Suspect]
     Indication: ACUTE PROMYELOCYTIC LEUKAEMIA
     Route: 042
     Dates: start: 20071001
  5. CYTARABINE [Suspect]
     Route: 042
     Dates: start: 20051001, end: 20070301

REACTIONS (1)
  - MITRAL VALVE INCOMPETENCE [None]
